FAERS Safety Report 5100016-6 (Version None)
Quarter: 2006Q3

REPORT INFORMATION
  Report Type: 
  Country: None (occurrence: None)
  Receive Date: 20060906
  Receipt Date: 20060906
  Transmission Date: 20061208
  Serious: Yes (Death)
  Sender: FDA-Public Use
  Company Number: None

PATIENT
  Age: 11 Year
  Sex: Female
  Weight: 30.2 kg

DRUGS (1)
  1. REMICADE [Suspect]
     Indication: CROHN'S DISEASE
     Dosage: 10MG/KG 1 TIME IV
     Route: 042
     Dates: start: 20060331, end: 20060331

REACTIONS (3)
  - BRAIN HERNIATION [None]
  - BRAIN STEM HAEMORRHAGE [None]
  - LOSS OF CONSCIOUSNESS [None]
